FAERS Safety Report 5528144-1 (Version None)
Quarter: 2007Q4

REPORT INFORMATION
  Report Type: 
  Country: None (occurrence: None)
  Receive Date: 20071121
  Receipt Date: 20071114
  Transmission Date: 20080405
  Serious: Yes (Death, Hospitalization)
  Sender: FDA-Public Use
  Company Number: 430001M07FRA

PATIENT
  Age: 71 Year
  Sex: Male

DRUGS (3)
  1. NOVANTRONE [Suspect]
     Indication: PROSTATE CANCER METASTATIC
     Dosage: INTRAVENOUS
     Route: 042
     Dates: start: 20051101, end: 20070101
  2. DECAPEPTYL (GONADORELIN) [Concomitant]
  3. ZOMETA [Concomitant]

REACTIONS (10)
  - CANDIDA PNEUMONIA [None]
  - ENTEROBACTER PNEUMONIA [None]
  - INTERSTITIAL LUNG DISEASE [None]
  - LEFT VENTRICULAR FAILURE [None]
  - LUNG INFECTION PSEUDOMONAL [None]
  - MULTI-ORGAN FAILURE [None]
  - PULMONARY OEDEMA [None]
  - RENAL FAILURE [None]
  - RESPIRATORY FAILURE [None]
  - STENOTROPHOMONAS INFECTION [None]
